FAERS Safety Report 10781367 (Version 1)
Quarter: 2015Q1

REPORT INFORMATION
  Report Type: Spontaneous
  Country: US (occurrence: None)
  Receive Date: 20150209
  Receipt Date: 20150209
  Transmission Date: 20150721
  Serious: Yes (Death)
  Sender: FDA-Public Use
  Company Number: None

PATIENT
  Age: 32 Year
  Sex: Female
  Weight: 73 kg

DRUGS (4)
  1. ANECTINE [Concomitant]
     Active Substance: SUCCINYLCHOLINE CHLORIDE
  2. ANTIHYPERTENSIVES [Concomitant]
     Active Substance: UNSPECIFIED INGREDIENT
  3. FENTANYL CITRATE. [Suspect]
     Active Substance: FENTANYL CITRATE
     Indication: LARYNGOSCOPY
     Route: 042
     Dates: start: 20150203, end: 20150203
  4. PROPOFOL. [Concomitant]
     Active Substance: PROPOFOL

REACTIONS (3)
  - Blood pressure decreased [None]
  - Treatment failure [None]
  - Cardio-respiratory arrest [None]

NARRATIVE: CASE EVENT DATE: 20150203
